FAERS Safety Report 7250803-3 (Version None)
Quarter: 2011Q1

REPORT INFORMATION
  Report Type: 
  Country: None (occurrence: None)
  Receive Date: 20110128
  Receipt Date: 20110118
  Transmission Date: 20110831
  Serious: Yes (Hospitalization)
  Sender: FDA-Public Use
  Company Number: DE-BRISTOL-MYERS SQUIBB COMPANY-15503972

PATIENT
  Age: 55 Year
  Sex: Male

DRUGS (27)
  1. OMNIC [Concomitant]
  2. VIDEX [Suspect]
     Indication: HIV INFECTION
     Route: 065
     Dates: start: 20061023
  3. EPIVIR [Suspect]
     Indication: HIV INFECTION
     Route: 065
     Dates: start: 20081118
  4. PLAVIX [Concomitant]
  5. METOHEXAL SUCC [Concomitant]
     Dates: start: 20070411
  6. STILNOX [Concomitant]
     Dates: start: 20080710
  7. SUSTIVA [Suspect]
     Indication: HIV INFECTION
     Route: 065
     Dates: start: 20061023
  8. RALTEGRAVIR [Suspect]
     Indication: HIV INFECTION
     Route: 048
     Dates: start: 20061023
  9. RAMIPRIL [Concomitant]
     Dates: start: 20100322
  10. STANGYL [Concomitant]
     Dates: start: 20070618
  11. TRUVADA [Suspect]
     Indication: HIV INFECTION
     Dosage: 1 DF: 1 TAB
     Route: 048
     Dates: start: 20060609, end: 20081116
  12. SAQUINAVIR [Suspect]
     Indication: HIV INFECTION
     Route: 065
     Dates: start: 20060609, end: 20061022
  13. LOCOL [Concomitant]
     Dates: start: 20070517
  14. IBUPROFEN [Concomitant]
  15. OMEGA-3 MARINE TRIGLYCERIDES [Concomitant]
  16. LEVOTHYROXINE SODIUM [Concomitant]
     Dates: start: 20091125
  17. ATAZANAVIR [Suspect]
     Indication: HIV INFECTION
     Route: 065
     Dates: start: 20060609, end: 20061022
  18. ENFUVIRTIDE [Suspect]
     Indication: HIV INFECTION
     Route: 065
     Dates: start: 20060609, end: 20060620
  19. APTIVUS [Suspect]
     Indication: HIV INFECTION
     Route: 065
     Dates: start: 20061023
  20. LEVOTHYROXINE SODIUM [Concomitant]
     Dates: start: 20091125
  21. PENTAERYTHRITOL TETRANITRATE [Concomitant]
     Dates: start: 20070410
  22. ASPIRIN [Concomitant]
  23. IMODIUM [Concomitant]
     Dates: start: 20060927
  24. NITROGLYCERIN [Concomitant]
  25. PRAVASTATIN SODIUM [Concomitant]
     Dates: start: 20090922
  26. NORVIR [Suspect]
     Indication: HIV INFECTION
     Dosage: 25FEB2004-22OCT2006. 971 DAYS 23OCT2006-ONG
     Route: 065
     Dates: start: 20040225
  27. EZETIMIBE [Concomitant]
     Dates: start: 20070306

REACTIONS (3)
  - PARKINSONISM [None]
  - ACUTE MYOCARDIAL INFARCTION [None]
  - ANGINA PECTORIS [None]
